FAERS Safety Report 8886095 (Version 3)
Quarter: 2014Q2

REPORT INFORMATION
  Report Type: Spontaneous
  Country: US (occurrence: US)
  Receive Date: 20121105
  Receipt Date: 20140605
  Transmission Date: 20141212
  Serious: Yes (Other)
  Sender: FDA-Public Use
  Company Number: US-ASTRAZENECA-2012SE82938

PATIENT
  Age: 78 Year
  Sex: Female
  Weight: 72.6 kg

DRUGS (14)
  1. CRESTOR [Suspect]
     Indication: BLOOD CHOLESTEROL INCREASED
     Route: 048
  2. CRESTOR [Suspect]
     Indication: BLOOD CHOLESTEROL INCREASED
     Route: 048
     Dates: start: 2004
  3. TRAZODONE HCL [Concomitant]
     Route: 048
  4. PLAVIX [Concomitant]
     Indication: CARDIAC DISORDER
     Route: 048
  5. IMDUR [Concomitant]
     Route: 048
  6. TRIAMTERENE HCTZ [Concomitant]
     Dosage: 37.5 MG/25 MG, 1 DF DAILY
     Route: 048
  7. COREG [Concomitant]
     Route: 048
  8. DIGOXIN [Concomitant]
     Route: 048
  9. LEXAPRO [Concomitant]
     Route: 048
  10. ASPIRIN [Concomitant]
     Route: 048
  11. PROTONIX [Concomitant]
     Route: 048
  12. TEMAZEPAM [Concomitant]
     Route: 048
  13. PHERGAN [Concomitant]
     Route: 048
  14. PRILOSEC [Concomitant]
     Route: 048

REACTIONS (12)
  - Ventricular arrhythmia [Unknown]
  - Fall [Unknown]
  - Ankle fracture [Recovered/Resolved with Sequelae]
  - Coronary artery disease [Unknown]
  - Oedema [Unknown]
  - Hypertension [Unknown]
  - Hypercholesterolaemia [Unknown]
  - Cardiac disorder [Unknown]
  - Influenza [Unknown]
  - Malaise [Unknown]
  - Dizziness [Recovering/Resolving]
  - Nausea [Unknown]
